APPROVED DRUG PRODUCT: DEFLAZACORT
Active Ingredient: DEFLAZACORT
Strength: 6MG
Dosage Form/Route: TABLET;ORAL
Application: A217173 | Product #001 | TE Code: AB
Applicant: AMNEAL EU LTD
Approved: Dec 12, 2025 | RLD: No | RS: No | Type: RX